FAERS Safety Report 12366187 (Version 2)
Quarter: 2016Q2

REPORT INFORMATION
  Report Type: Other
  Country: US (occurrence: US)
  Receive Date: 20160513
  Receipt Date: 20160517
  Transmission Date: 20160815
  Serious: Yes (Hospitalization)
  Sender: FDA-Public Use
  Company Number: US-BRECKENRIDGE PHARMACEUTICAL, INC.-1052157

PATIENT
  Age: 22 Year
  Sex: Female

DRUGS (2)
  1. ESTRADIOL NORETHINDRONE [Suspect]
     Active Substance: ESTRADIOL\NORETHINDRONE ACETATE
     Indication: ENDOMETRIOSIS
  2. ESTRADIOL / NORETHINDRONE ACETATE [Concomitant]
     Active Substance: ESTRADIOL\NORETHINDRONE ACETATE

REACTIONS (1)
  - Hepatic neoplasm [Recovering/Resolving]
